FAERS Safety Report 7199316-8 (Version None)
Quarter: 2010Q4

REPORT INFORMATION
  Report Type: 
  Country: None (occurrence: None)
  Receive Date: 20101223
  Receipt Date: 20101223
  Transmission Date: 20110411
  Serious: Yes (Life-Threatening, Hospitalization, Other)
  Sender: FDA-Public Use
  Company Number: None

PATIENT
  Sex: Female
  Weight: 63.5036 kg

DRUGS (2)
  1. CYMBALTA [Suspect]
     Indication: DEPRESSION
     Dosage: 30 MG. TWICE DAILY MOUTH
     Route: 048
     Dates: start: 20100616, end: 20101111
  2. ZOLPIDEM [Suspect]
     Indication: FALL
     Dosage: 10 MG ONCE DAILY MOUTH
     Route: 048
     Dates: start: 20100826, end: 20101111

REACTIONS (3)
  - COGNITIVE DISORDER [None]
  - HAEMATEMESIS [None]
  - HAEMORRHAGE [None]
